FAERS Safety Report 5866796-7 (Version None)
Quarter: 2008Q3

REPORT INFORMATION
  Report Type: 
  Country: None (occurrence: None)
  Receive Date: 20080902
  Receipt Date: 20080827
  Transmission Date: 20090109
  Serious: Yes (Other)
  Sender: FDA-Public Use
  Company Number: US-WYE-H05150808

PATIENT
  Sex: Male

DRUGS (1)
  1. NEUMEGA [Suspect]
     Dosage: UNKNOWN

REACTIONS (1)
  - OEDEMA PERIPHERAL [None]
